FAERS Safety Report 19371181 (Version 2)
Quarter: 2021Q2

REPORT INFORMATION
  Report Type: Report from Study
  Country: KR (occurrence: KR)
  Receive Date: 20210604
  Receipt Date: 20210607
  Transmission Date: 20210717
  Serious: Yes (Other)
  Sender: FDA-Public Use
  Company Number: KR-AMGEN-KORCT2021084252

PATIENT
  Age: 73 Year
  Sex: Female

DRUGS (28)
  1. DECITABINE. [Concomitant]
     Active Substance: DECITABINE
     Dosage: UNK, QD (20)
     Route: 065
     Dates: start: 20110203, end: 20110203
  2. DECITABINE. [Concomitant]
     Active Substance: DECITABINE
     Dosage: UNK, QD (20)
     Route: 065
     Dates: start: 20110206, end: 20110206
  3. CIPROFLOXACIN. [Concomitant]
     Active Substance: CIPROFLOXACIN
     Indication: PRODUCT USED FOR UNKNOWN INDICATION
     Dosage: 1000 MILLIGRAM
     Route: 065
     Dates: start: 20110104, end: 20110202
  4. CODEINE [Concomitant]
     Active Substance: CODEINE
     Dosage: 20 MILLIGRAM
     Route: 065
     Dates: start: 20110209, end: 20110212
  5. SPIRONOLACTONE. [Concomitant]
     Active Substance: SPIRONOLACTONE
     Dosage: 25 MILLIGRAM
     Route: 065
     Dates: start: 20110209, end: 20110209
  6. VALSARTAN. [Concomitant]
     Active Substance: VALSARTAN
     Indication: PRODUCT USED FOR UNKNOWN INDICATION
     Dosage: 80 MILLIGRAM
     Route: 065
     Dates: start: 20110106, end: 20110109
  7. FILGRASTIM [Suspect]
     Active Substance: FILGRASTIM
     Indication: PRODUCT USED FOR UNKNOWN INDICATION
     Dosage: 300 UNK
     Route: 065
     Dates: start: 20110214, end: 20110304
  8. DECITABINE. [Concomitant]
     Active Substance: DECITABINE
     Dosage: UNK, QD (20)
     Route: 065
     Dates: start: 20110207, end: 20110207
  9. AMIKACIN. [Concomitant]
     Active Substance: AMIKACIN
     Indication: PRODUCT USED FOR UNKNOWN INDICATION
     Dosage: 500 MILLIGRAM
     Route: 065
     Dates: start: 20101230, end: 20110106
  10. DECITABINE. [Concomitant]
     Active Substance: DECITABINE
     Indication: PRODUCT USED FOR UNKNOWN INDICATION
     Dosage: UNK, QD (20)
     Route: 065
     Dates: start: 20110104, end: 20110104
  11. SPIRONOLACTONE. [Concomitant]
     Active Substance: SPIRONOLACTONE
     Indication: PRODUCT USED FOR UNKNOWN INDICATION
     Dosage: 25 MILLIGRAM
     Route: 065
     Dates: start: 20110204, end: 20110207
  12. SPIRONOLACTONE. [Concomitant]
     Active Substance: SPIRONOLACTONE
     Dosage: 50 MILLIGRAM
     Route: 065
     Dates: start: 20110210, end: 20110227
  13. DECITABINE. [Concomitant]
     Active Substance: DECITABINE
     Dosage: UNK, QD (20)
     Route: 065
     Dates: start: 20110106, end: 20110106
  14. DECITABINE. [Concomitant]
     Active Substance: DECITABINE
     Dosage: UNK, QD (20)
     Route: 065
     Dates: start: 20110204, end: 20110204
  15. AMLODIPINE [Concomitant]
     Active Substance: AMLODIPINE BESYLATE
     Indication: PRODUCT USED FOR UNKNOWN INDICATION
     Dosage: 5 MILLIGRAM
     Route: 065
     Dates: start: 20110105, end: 20110209
  16. ATENOLOL. [Concomitant]
     Active Substance: ATENOLOL
     Indication: PRODUCT USED FOR UNKNOWN INDICATION
     Dosage: 50 MILLIGRAM
     Route: 065
     Dates: start: 20110106, end: 20110227
  17. CIPROFLOXACIN. [Concomitant]
     Active Substance: CIPROFLOXACIN
     Dosage: 1000 MILLIGRAM
     Route: 065
     Dates: start: 20110203, end: 20110225
  18. IMIPENEM AND CILASTATIN [Concomitant]
     Active Substance: CILASTATIN SODIUM\IMIPENEM
     Indication: PRODUCT USED FOR UNKNOWN INDICATION
     Dosage: 2 UNK
     Route: 065
     Dates: start: 20110104, end: 20110112
  19. TEICOPLANIN [Concomitant]
     Active Substance: TEICOPLANIN
     Indication: PRODUCT USED FOR UNKNOWN INDICATION
     Dosage: 200 MILLIGRAM
     Route: 065
     Dates: start: 20110101, end: 20110107
  20. DECITABINE. [Concomitant]
     Active Substance: DECITABINE
     Dosage: UNK, QD (20)
     Route: 065
     Dates: start: 20110107, end: 20110107
  21. CEFAZOLIN [Concomitant]
     Active Substance: CEFAZOLIN
     Indication: PRODUCT USED FOR UNKNOWN INDICATION
     Dosage: 3 UNK
     Route: 065
     Dates: start: 20110213, end: 20110220
  22. CODEINE [Concomitant]
     Active Substance: CODEINE
     Indication: PRODUCT USED FOR UNKNOWN INDICATION
     Dosage: 20 MILLIGRAM
     Route: 065
     Dates: start: 20110204, end: 20110206
  23. ITRACONAZOLE. [Concomitant]
     Active Substance: ITRACONAZOLE
     Indication: PRODUCT USED FOR UNKNOWN INDICATION
     Dosage: 40 UNK
     Route: 065
     Dates: start: 20110104, end: 20110202
  24. ITRACONAZOLE. [Concomitant]
     Active Substance: ITRACONAZOLE
     Dosage: 40 UNK
     Route: 065
     Dates: start: 20110203, end: 20110228
  25. VALSARTAN. [Concomitant]
     Active Substance: VALSARTAN
     Dosage: 80 MILLIGRAM
     Route: 065
     Dates: start: 20110210, end: 20110221
  26. DECITABINE. [Concomitant]
     Active Substance: DECITABINE
     Dosage: UNK, QD (20)
     Route: 065
     Dates: start: 20110105, end: 20110105
  27. DECITABINE. [Concomitant]
     Active Substance: DECITABINE
     Dosage: UNK, QD (20)
     Route: 065
     Dates: start: 20110108, end: 20110108
  28. DECITABINE. [Concomitant]
     Active Substance: DECITABINE
     Dosage: UNK, QD (20)
     Route: 065
     Dates: start: 20110205, end: 20110205

REACTIONS (7)
  - Injection site cellulitis [Recovered/Resolved]
  - Generalised oedema [Not Recovered/Not Resolved]
  - Thrombocytopenia [Recovered/Resolved]
  - Anaemia [Not Recovered/Not Resolved]
  - Neutropenia [Recovered/Resolved]
  - Hypokalaemia [Recovered/Resolved]
  - Petechiae [Recovered/Resolved]

NARRATIVE: CASE EVENT DATE: 20110108
